FAERS Safety Report 9880916 (Version 1)
Quarter: 2014Q1

REPORT INFORMATION
  Report Type: Spontaneous
  Country: US (occurrence: US)
  Receive Date: 20140207
  Receipt Date: 20140207
  Transmission Date: 20141002
  Serious: No
  Sender: FDA-Public Use
  Company Number: US-PFIZER INC-2014031891

PATIENT
  Age: 53 Year
  Sex: Female
  Weight: 56.69 kg

DRUGS (5)
  1. ALPRAZOLAM [Suspect]
     Indication: AUTONOMIC NERVOUS SYSTEM IMBALANCE
     Dosage: UNK
     Route: 060
  2. ALPRAZOLAM [Suspect]
     Indication: ORTHOSTATIC INTOLERANCE
  3. ALPRAZOLAM [Suspect]
     Indication: ADRENERGIC SYNDROME
  4. CALCIUM [Concomitant]
     Indication: SUPPLEMENTATION THERAPY
     Dosage: UNK
  5. VITAMIN D [Concomitant]
     Indication: SUPPLEMENTATION THERAPY
     Dosage: UNK

REACTIONS (6)
  - Drug ineffective [Recovered/Resolved]
  - Asthenia [Recovered/Resolved]
  - Feeling abnormal [Recovered/Resolved]
  - Withdrawal syndrome [Recovered/Resolved]
  - Product taste abnormal [Recovered/Resolved]
  - Incorrect route of drug administration [Unknown]
